FAERS Safety Report 21602567 (Version 2)
Quarter: 2023Q1

REPORT INFORMATION
  Report Type: Spontaneous
  Country: US (occurrence: US)
  Receive Date: 20221116
  Receipt Date: 20230217
  Transmission Date: 20230417
  Serious: No
  Sender: FDA-Public Use
  Company Number: US-BIOVITRUM-2022US13040

PATIENT
  Age: 0 Year
  Sex: Male
  Weight: 7 kg

DRUGS (17)
  1. SYNAGIS [Suspect]
     Active Substance: PALIVIZUMAB
     Indication: Premature baby
     Dosage: INTO THE MUSCLE
     Dates: start: 20221011
  2. LASIX [Concomitant]
     Active Substance: FUROSEMIDE
     Dosage: TABLET
  3. CAPTOPRIL [Concomitant]
     Active Substance: CAPTOPRIL
     Dosage: 100 PERCENT POWDER
  4. PROPRANOL OL HCL [Concomitant]
     Dosage: 20 MG/5ML SOLUTION
  5. VITAMIN D [Concomitant]
     Active Substance: VITAMIN D NOS
     Dosage: 10 MCG TABLET
  6. SYNAGIS [Suspect]
     Active Substance: PALIVIZUMAB
     Indication: Ventricular septal defect
  7. SYNAGIS [Suspect]
     Active Substance: PALIVIZUMAB
     Indication: Patent ductus arteriosus
  8. EPINEPHRINE [Concomitant]
     Active Substance: EPINEPHRINE
  9. SYNAGIS [Suspect]
     Active Substance: PALIVIZUMAB
     Indication: Failure to thrive
  10. SYNAGIS [Suspect]
     Active Substance: PALIVIZUMAB
     Indication: Double outlet right ventricle
  11. SYNAGIS [Suspect]
     Active Substance: PALIVIZUMAB
     Indication: Cardiac failure
  12. SYNAGIS [Suspect]
     Active Substance: PALIVIZUMAB
     Indication: Inguinal hernia
  13. SYNAGIS [Suspect]
     Active Substance: PALIVIZUMAB
     Indication: Developmental hip dysplasia
  14. SYNAGIS [Suspect]
     Active Substance: PALIVIZUMAB
     Indication: Hypertrophic cardiomyopathy
  15. SYNAGIS [Suspect]
     Active Substance: PALIVIZUMAB
     Indication: Congenital scoliosis
  16. SYNAGIS [Suspect]
     Active Substance: PALIVIZUMAB
     Indication: Small for dates baby
  17. SYNAGIS [Suspect]
     Active Substance: PALIVIZUMAB
     Indication: Heart disease congenital

REACTIONS (2)
  - Erythema [Recovered/Resolved]
  - Piloerection [Recovered/Resolved]

NARRATIVE: CASE EVENT DATE: 20221011
